FAERS Safety Report 8820477 (Version 1)
Quarter: 2012Q4

REPORT INFORMATION
  Report Type: 
  Country: DE (occurrence: DE)
  Receive Date: 20121002
  Receipt Date: 20121002
  Transmission Date: 20130627
  Serious: Yes (Hospitalization)
  Sender: FDA-Public Use
  Company Number: DE-ABBOTT-12P-062-0987052-00

PATIENT
  Age: 33 Year
  Sex: Female

DRUGS (2)
  1. HUMIRA [Suspect]
     Indication: CROHN^S DISEASE
     Dates: start: 2008, end: 2011
  2. HUMIRA [Suspect]
     Dates: start: 2012

REACTIONS (6)
  - Bipolar disorder [Unknown]
  - Crohn^s disease [Recovering/Resolving]
  - Pneumonia [Recovered/Resolved]
  - Crohn^s disease [Recovering/Resolving]
  - Psychotic disorder [Not Recovered/Not Resolved]
  - Paranoia [Recovering/Resolving]
